FAERS Safety Report 4313286-9 (Version None)
Quarter: 2004Q1

REPORT INFORMATION
  Report Type: 
  Country: None (occurrence: None)
  Receive Date: 20040305
  Receipt Date: 20040305
  Transmission Date: 20041129
  Serious: No
  Sender: FDA-Public Use
  Company Number: None

PATIENT
  Sex: Female
  Weight: 87.0906 kg

DRUGS (2)
  1. TAXOL [Suspect]
     Indication: OVARIAN CANCER
     Dosage: 340 MG IV
     Route: 042
     Dates: start: 20030423
  2. KYTRIL [Concomitant]

REACTIONS (2)
  - ANAPHYLACTOID REACTION [None]
  - BACK PAIN [None]
